FAERS Safety Report 10005438 (Version 1)
Quarter: 2014Q1

REPORT INFORMATION
  Report Type: Spontaneous
  Country: HU (occurrence: HU)
  Receive Date: 20140313
  Receipt Date: 20140313
  Transmission Date: 20141002
  Serious: Yes (Life-Threatening)
  Sender: FDA-Public Use
  Company Number: HU-ROCHE-1361960

PATIENT
  Sex: Female

DRUGS (1)
  1. MABTHERA [Suspect]
     Indication: RHEUMATOID ARTHRITIS
     Dosage: 2 IV, 2 WEEKS APART EVERY 6 MONTHS
     Route: 041
     Dates: start: 20080416, end: 20130617

REACTIONS (3)
  - Cardiac arrest [Not Recovered/Not Resolved]
  - Ventricular fibrillation [Not Recovered/Not Resolved]
  - Loss of consciousness [Not Recovered/Not Resolved]
